FAERS Safety Report 6567304-8 (Version None)
Quarter: 2010Q1

REPORT INFORMATION
  Report Type: 
  Country: None (occurrence: None)
  Receive Date: 20100202
  Receipt Date: 20100120
  Transmission Date: 20100710
  Serious: Yes (Hospitalization)
  Sender: FDA-Public Use
  Company Number: PHHY2010MX01838

PATIENT
  Age: 79 Year
  Sex: Male

DRUGS (1)
  1. DIOVAN HCT [Suspect]
     Indication: HYPERTENSION
     Dosage: ONE TABLET (160/12.5 MG) PER DAY
     Route: 048

REACTIONS (8)
  - AMNESIA [None]
  - CONCOMITANT DISEASE PROGRESSION [None]
  - DEBRIDEMENT [None]
  - FOOT OPERATION [None]
  - GANGRENE [None]
  - LOCALISED INFECTION [None]
  - SKIN GRAFT [None]
  - TREATMENT NONCOMPLIANCE [None]
